FAERS Safety Report 8192318-4 (Version None)
Quarter: 2012Q1

REPORT INFORMATION
  Report Type: 
  Country: None (occurrence: None)
  Receive Date: 20120307
  Receipt Date: 20120227
  Transmission Date: 20120608
  Serious: Yes (Other)
  Sender: FDA-Public Use
  Company Number: US-ASTRAZENECA-2009UW03515

PATIENT
  Age: 44 Year
  Sex: Female

DRUGS (3)
  1. CRESTOR [Suspect]
     Route: 048
  2. SEROQUEL [Concomitant]
     Route: 048
  3. NEXIUM [Suspect]
     Route: 048
     Dates: start: 20051108

REACTIONS (5)
  - DIABETES MELLITUS [None]
  - DRY MOUTH [None]
  - MALAISE [None]
  - DRUG INEFFECTIVE [None]
  - BACK PAIN [None]
